FAERS Safety Report 17208190 (Version 1)
Quarter: 2019Q4

REPORT INFORMATION
  Report Type: Spontaneous
  Country: US (occurrence: US)
  Receive Date: 20191227
  Receipt Date: 20191227
  Transmission Date: 20200122
  Serious: No
  Sender: FDA-Public Use
  Company Number: US-UCBSA-2018029440

PATIENT

DRUGS (3)
  1. TOPIRAMATE. [Concomitant]
     Active Substance: TOPIRAMATE
     Indication: PRODUCT USED FOR UNKNOWN INDICATION
  2. LEVETIRACETAM. [Suspect]
     Active Substance: LEVETIRACETAM
     Indication: EPILEPSY
     Dosage: 1,500 MG/DAY
  3. LEVETIRACETAM. [Suspect]
     Active Substance: LEVETIRACETAM
     Dosage: 1,000 MG/DAY

REACTIONS (5)
  - Weight increased [Unknown]
  - Anxiety [Unknown]
  - Depression [Unknown]
  - Memory impairment [Unknown]
  - Disturbance in attention [Unknown]
